FAERS Safety Report 6836181-X (Version None)
Quarter: 2010Q3

REPORT INFORMATION
  Report Type: 
  Country: None (occurrence: None)
  Receive Date: 20100713
  Receipt Date: 20100707
  Transmission Date: 20110219
  Serious: Yes (Hospitalization, Other)
  Sender: FDA-Public Use
  Company Number: US-SANOFI-AVENTIS-2010SA040194

PATIENT
  Age: 85 Year
  Sex: Female

DRUGS (5)
  1. LANTUS [Suspect]
     Dosage: DOSE:30 UNIT(S)
     Route: 058
     Dates: start: 20100101
  2. LANTUS [Suspect]
     Dosage: DOSE:20 UNIT(S)
     Route: 058
     Dates: start: 20080101, end: 20100101
  3. OPTICLICK [Suspect]
     Indication: DIABETES MELLITUS
     Dates: start: 20080101
  4. OXYGEN [Concomitant]
     Dates: start: 20010101
  5. LASIX [Concomitant]

REACTIONS (4)
  - BLINDNESS [None]
  - GAIT DISTURBANCE [None]
  - GOUT [None]
  - INJURY ASSOCIATED WITH DEVICE [None]
